FAERS Safety Report 4343083-X (Version None)
Quarter: 2004Q2

REPORT INFORMATION
  Report Type: 
  Country: None (occurrence: None)
  Receive Date: 20040419
  Receipt Date: 20040401
  Transmission Date: 20050107
  Serious: Yes (Hospitalization)
  Sender: FDA-Public Use
  Company Number: A01200401626

PATIENT
  Age: 32 Year
  Sex: Male

DRUGS (1)
  1. XATRAL-(ALFUZOSIN) - TABLET PR-5 MG [Suspect]
     Indication: BENIGN PROSTATIC HYPERPLASIA
     Dosage: 5 MG BID ORAL
     Route: 048

REACTIONS (5)
  - DIARRHOEA [None]
  - DIZZINESS [None]
  - DRY MOUTH [None]
  - HEADACHE [None]
  - PYREXIA [None]
